FAERS Safety Report 13362135 (Version 1)
Quarter: 2017Q1

REPORT INFORMATION
  Report Type: Spontaneous
  Country: US (occurrence: US)
  Receive Date: 20170323
  Receipt Date: 20170323
  Transmission Date: 20170429
  Serious: Yes (Other)
  Sender: FDA-Public Use
  Company Number: US-GLAXOSMITHKLINE-US2017GSK039775

PATIENT
  Age: 54 Year
  Sex: Female

DRUGS (2)
  1. NUCALA [Suspect]
     Active Substance: MEPOLIZUMAB
     Indication: ASTHMA
     Dosage: 1 DF MONTHLY
     Route: 058
     Dates: start: 201607
  2. NUCALA [Suspect]
     Active Substance: MEPOLIZUMAB
     Indication: BRONCHOPULMONARY ASPERGILLOSIS ALLERGIC

REACTIONS (5)
  - Influenza [Unknown]
  - Off label use [Unknown]
  - Pneumonia [Unknown]
  - Cough [Unknown]
  - Respiratory disorder [Unknown]

NARRATIVE: CASE EVENT DATE: 201701
